FAERS Safety Report 23834834 (Version 2)
Quarter: 2024Q2

REPORT INFORMATION
  Report Type: Report from Study
  Country: US (occurrence: US)
  Receive Date: 20240509
  Receipt Date: 20240517
  Transmission Date: 20240716
  Serious: No
  Sender: FDA-Public Use
  Company Number: US-DECIPHERA PHARMACEUTICALS LLC-2024US000388

PATIENT
  Age: 76 Year
  Sex: Female

DRUGS (3)
  1. QINLOCK [Suspect]
     Active Substance: RIPRETINIB
     Indication: Gastrointestinal stromal tumour
     Dosage: 150 MILLIGRAM, (3 TABLETS DAILY) QD ()
     Route: 048
     Dates: start: 20240205, end: 2024
  2. QINLOCK [Suspect]
     Active Substance: RIPRETINIB
     Dosage: 100 MILLIGRAM, QD (2 TABLETS BY MOUTH ONCE DAILY OR WITHOUT FOOD)
     Route: 048
     Dates: start: 20240306
  3. ELIQUIS [Concomitant]
     Active Substance: APIXABAN
     Indication: Anticoagulant therapy
     Dosage: 2.5 MILLIGRAM

REACTIONS (12)
  - Skin hypertrophy [Unknown]
  - Skin discolouration [Unknown]
  - Tumour pain [Unknown]
  - Eye infection [Unknown]
  - Vitamin D decreased [Unknown]
  - Blood calcium decreased [Unknown]
  - Malaise [Unknown]
  - Pain [Unknown]
  - Fatigue [Unknown]
  - Constipation [Not Recovered/Not Resolved]
  - Alopecia [Unknown]
  - Hypertension [Unknown]

NARRATIVE: CASE EVENT DATE: 20240101
